FAERS Safety Report 6620269-2 (Version None)
Quarter: 2010Q1

REPORT INFORMATION
  Report Type: 
  Country: None (occurrence: None)
  Receive Date: 20100309
  Receipt Date: 20070427
  Transmission Date: 20100710
  Serious: Yes (Life-Threatening, Hospitalization)
  Sender: FDA-Public Use
  Company Number: HQWYE888227APR07

PATIENT
  Age: 70 Year
  Sex: Female

DRUGS (4)
  1. NEUMEGA [Suspect]
     Indication: PROPHYLAXIS
     Dosage: UNKNOWN
     Route: 058
     Dates: start: 20070401
  2. NEUMEGA [Suspect]
     Indication: THROMBOCYTOPENIA
  3. OXALIPLATIN [Concomitant]
  4. FLUOROURACIL [Concomitant]

REACTIONS (1)
  - ARRHYTHMIA [None]
